FAERS Safety Report 9559145 (Version 2)
Quarter: 2013Q4

REPORT INFORMATION
  Report Type: Spontaneous
  Country: US (occurrence: US)
  Receive Date: 20130927
  Receipt Date: 20131003
  Transmission Date: 20140711
  Serious: No
  Sender: FDA-Public Use
  Company Number: US-009507513-1309USA007632

PATIENT
  Sex: 0

DRUGS (2)
  1. EMEND FOR INJECTION [Suspect]
     Indication: NAUSEA
     Dosage: EMEND VIAL (SDV,MDV OR ADDITIVE)(EA)150 MG, UNSPECIFIED FREQUENCY
     Route: 042
     Dates: start: 2013
  2. EMEND FOR INJECTION [Suspect]
     Indication: VOMITING

REACTIONS (3)
  - Chest discomfort [Unknown]
  - Anxiety [Unknown]
  - Dyspnoea [Unknown]
